FAERS Safety Report 16918750 (Version 6)
Quarter: 2020Q1

REPORT INFORMATION
  Report Type: Report from Study
  Country: CA (occurrence: CA)
  Receive Date: 20191015
  Receipt Date: 20200113
  Transmission Date: 20200409
  Serious: Yes (Hospitalization)
  Sender: FDA-Public Use
  Company Number: CA-EISAI MEDICAL RESEARCH-EC-2019-063596

PATIENT
  Age: 79 Year
  Sex: Female
  Weight: 62.81 kg

DRUGS (19)
  1. PEMBROLIZUMAB. [Suspect]
     Active Substance: PEMBROLIZUMAB
     Indication: ENDOMETRIAL CANCER
     Route: 041
     Dates: start: 20190321, end: 20190321
  2. VENLAFAXINE [Concomitant]
     Active Substance: VENLAFAXINE HYDROCHLORIDE
     Dates: start: 200901
  3. ARTHRITIS PAIN FORMULA [Concomitant]
     Dates: start: 20190219
  4. ANGLO-FRENCH LABS ARTECHOL [Concomitant]
     Dates: start: 20190219, end: 20190312
  5. CLONAZEPAM. [Concomitant]
     Active Substance: CLONAZEPAM
     Dates: start: 200901
  6. EMOLAX [Concomitant]
     Dates: start: 201809, end: 20190312
  7. LENVATINIB [Suspect]
     Active Substance: LENVATINIB
     Indication: ENDOMETRIAL CANCER
     Route: 048
     Dates: start: 20190321, end: 20190409
  8. CALCIUM [Concomitant]
     Active Substance: CALCIUM
     Dates: start: 20190219, end: 20190312
  9. CALCIUM/MAGNESIUM/VITAMIN D [Concomitant]
     Dates: start: 20190219, end: 20190312
  10. LENVATINIB [Suspect]
     Active Substance: LENVATINIB
     Dosage: DOSE STARTING AT 20 MG, FLUCTUATED DOSES
     Route: 048
     Dates: start: 20190410, end: 20190929
  11. PEMBROLIZUMAB. [Suspect]
     Active Substance: PEMBROLIZUMAB
     Route: 041
     Dates: start: 20190410
  12. ASCORBIC ACID. [Concomitant]
     Active Substance: ASCORBIC ACID
     Dates: start: 201209, end: 20190312
  13. SENOKOT [Concomitant]
     Active Substance: SENNOSIDES
     Dates: start: 199001
  14. VITAMIN D [Concomitant]
     Active Substance: VITAMIN D NOS
     Dates: start: 20190313
  15. DOCUSATE SODIUM. [Concomitant]
     Active Substance: DOCUSATE SODIUM
     Dates: start: 20190313
  16. PANTOLOC [Concomitant]
     Active Substance: PANTOPRAZOLE SODIUM
     Dates: start: 20190313, end: 20190830
  17. LENVATINIB [Suspect]
     Active Substance: LENVATINIB
     Route: 048
     Dates: start: 20191010
  18. COLLAGEN [Concomitant]
     Active Substance: COLLAGEN
     Dates: start: 201901, end: 20190312
  19. ZANTAC [Concomitant]
     Active Substance: RANITIDINE HYDROCHLORIDE
     Dates: start: 20190219, end: 20190312

REACTIONS (1)
  - Decreased appetite [Not Recovered/Not Resolved]

NARRATIVE: CASE EVENT DATE: 20190324
